FAERS Safety Report 4302756-5 (Version None)
Quarter: 2004Q1

REPORT INFORMATION
  Report Type: 
  Country: None (occurrence: None)
  Receive Date: 20040224
  Receipt Date: 20030317
  Transmission Date: 20041129
  Serious: No
  Sender: FDA-Public Use
  Company Number: US-BRISTOL-MYERS SQUIBB COMPANY-12213393

PATIENT
  Age: 64 Year
  Sex: Female
  Weight: 59 kg

DRUGS (4)
  1. KENALOG-10 [Suspect]
     Indication: SCIATICA
     Dates: start: 20030113, end: 20030127
  2. LIDOCAINE [Suspect]
     Indication: SCIATICA
     Dates: start: 20030113, end: 20030128
  3. VERAPAMIL [Concomitant]
  4. FUROSEMIDE [Concomitant]

REACTIONS (2)
  - PAIN EXACERBATED [None]
  - SWELLING [None]
